FAERS Safety Report 4961969-X (Version None)
Quarter: 2006Q2

REPORT INFORMATION
  Report Type: 
  Country: None (occurrence: None)
  Receive Date: 20060404
  Receipt Date: 20060119
  Transmission Date: 20061013
  Serious: Yes (Other)
  Sender: FDA-Public Use
  Company Number: HU-ROCHE-432936

PATIENT
  Age: 66 Year
  Sex: Female
  Weight: 95.5 kg

DRUGS (5)
  1. XENICAL [Suspect]
     Indication: OBESITY
     Route: 048
     Dates: start: 20051101, end: 20051115
  2. XENICAL [Suspect]
     Route: 048
     Dates: start: 20051116, end: 20060114
  3. COVEREX [Concomitant]
  4. AMILORID [Concomitant]
  5. NITRODERM [Concomitant]

REACTIONS (12)
  - ABDOMINAL PAIN [None]
  - BLOOD BILIRUBIN INCREASED [None]
  - BLOOD GLUCOSE INCREASED [None]
  - BLOOD URINE [None]
  - CONJUNCTIVITIS [None]
  - DIARRHOEA [None]
  - FOOT FRACTURE [None]
  - HEPATIC STEATOSIS [None]
  - HERPES ZOSTER [None]
  - NEPHROLITHIASIS [None]
  - PURPURA [None]
  - WEIGHT DECREASED [None]
